FAERS Safety Report 18500196 (Version 1)
Quarter: 2020Q4

REPORT INFORMATION
  Report Type: Spontaneous
  Country: US (occurrence: US)
  Receive Date: 20201112
  Receipt Date: 20201112
  Transmission Date: 20210114
  Serious: No
  Sender: FDA-Public Use
  Company Number: None

PATIENT
  Age: 80 Year
  Sex: Female

DRUGS (1)
  1. OTEZLA [Suspect]
     Active Substance: APREMILAST
     Indication: PSORIASIS
     Dosage: AS DIRECTED. PATIENT NEEDS A FOLLOW UP APPOINTMENT
     Route: 048
     Dates: start: 202008

REACTIONS (2)
  - Unevaluable event [None]
  - Dementia [None]
